FAERS Safety Report 8623066-1 (Version None)
Quarter: 2012Q3

REPORT INFORMATION
  Report Type: 
  Country: None (occurrence: None)
  Receive Date: 20120810
  Receipt Date: 20120730
  Transmission Date: 20120928
  Serious: Yes (Other)
  Sender: FDA-Public Use
  Company Number: 2012P1052339

PATIENT
  Age: 46 Year
  Sex: Male
  Weight: 111.4 kg

DRUGS (4)
  1. DEXAMETHASONE [Suspect]
     Indication: GLIOBLASTOMA MULTIFORME
     Dosage: 12 MG;QD;PO, 4 MG;QD;PO 8 MG;QD;PO 12 MG;QD;PO 16 MG;QD;PO
     Route: 048
  2. TEMOZOLOMIDE [Suspect]
     Indication: GLIOBLASTOMA MULTIFORME
     Dosage: 150 MG/M2; 200 MG/M2; 75 MG/M2;Q28D;
  3. TEMOZOLOMIDE [Suspect]
     Indication: GLIOBLASTOMA MULTIFORME
     Dosage: 150 MG/M2; 200 MG/M2; 75 MG/M2;Q28D;
  4. TEMOZOLOMIDE [Suspect]
     Indication: GLIOBLASTOMA MULTIFORME
     Dosage: 150 MG/M2; 200 MG/M2; 75 MG/M2;Q28D;

REACTIONS (5)
  - NON-ALCOHOLIC STEATOHEPATITIS [None]
  - HEADACHE [None]
  - CONFUSIONAL STATE [None]
  - APHASIA [None]
  - HEPATIC STEATOSIS [None]
